FAERS Safety Report 8810256 (Version 2)
Quarter: 2013Q1

REPORT INFORMATION
  Report Type: Spontaneous
  Country: US (occurrence: US)
  Receive Date: 20120926
  Receipt Date: 20130207
  Transmission Date: 20140127
  Serious: No
  Sender: FDA-Public Use
  Company Number: US-009507513-1209USA008564

PATIENT
  Age: 87 Year
  Sex: Female

DRUGS (1)
  1. NASONEX [Suspect]
     Indication: SINUS DISORDER
     Dosage: UNK
     Route: 045
     Dates: end: 20120918

REACTIONS (3)
  - Nasal congestion [Recovering/Resolving]
  - Nasal disorder [Recovering/Resolving]
  - Epistaxis [Recovering/Resolving]
